FAERS Safety Report 25383969 (Version 2)
Quarter: 2025Q3

REPORT INFORMATION
  Report Type: Spontaneous
  Country: US (occurrence: US)
  Receive Date: 20250602
  Receipt Date: 20250724
  Transmission Date: 20251021
  Serious: Yes (Other)
  Sender: COOPERSURGICAL
  Company Number: US-COOPERSURGICAL, INC.-2025CPS004476

PATIENT
  Age: 31 Year
  Sex: Female
  Weight: 71.202 kg

DRUGS (1)
  1. PARAGARD T 380A [Suspect]
     Active Substance: COPPER
     Indication: Contraception
     Route: 015
     Dates: start: 20160916

REACTIONS (10)
  - Ovarian cyst [Not Recovered/Not Resolved]
  - Ectopic pregnancy [Recovered/Resolved]
  - Reproductive complication associated with device [Unknown]
  - Device breakage [Not Recovered/Not Resolved]
  - Foreign body in reproductive tract [Not Recovered/Not Resolved]
  - Sexual dysfunction [Unknown]
  - Emotional distress [Unknown]
  - Muscle spasms [Recovered/Resolved]
  - Device expulsion [Not Recovered/Not Resolved]
  - Menstrual disorder [Unknown]

NARRATIVE: CASE EVENT DATE: 20171101
